FAERS Safety Report 4594642-0 (Version None)
Quarter: 2005Q1

REPORT INFORMATION
  Report Type: 
  Country: None (occurrence: None)
  Receive Date: 20050301
  Receipt Date: 20041116
  Transmission Date: 20050727
  Serious: No
  Sender: FDA-Public Use
  Company Number: US-BRISTOL-MYERS SQUIBB COMPANY-12767299

PATIENT
  Age: 70 Year
  Sex: Female

DRUGS (3)
  1. ERBITUX [Suspect]
     Indication: COLON CANCER
     Route: 042
     Dates: start: 20040101, end: 20040101
  2. BENADRYL [Concomitant]
     Indication: PREMEDICATION
     Route: 042
     Dates: start: 20040101, end: 20040101
  3. TYLENOL (CAPLET) [Concomitant]
     Indication: PREMEDICATION
     Dates: start: 20040101, end: 20040101

REACTIONS (2)
  - NAIL DISORDER [None]
  - SKIN ULCER [None]
